FAERS Safety Report 12677752 (Version 3)
Quarter: 2016Q4

REPORT INFORMATION
  Report Type: Spontaneous
  Country: US (occurrence: US)
  Receive Date: 20160823
  Receipt Date: 20161026
  Transmission Date: 20170207
  Serious: No
  Sender: FDA-Public Use
  Company Number: US-LUNDBECK-DKLU2017523

PATIENT
  Sex: Male

DRUGS (7)
  1. NORTHERA [Suspect]
     Active Substance: DROXIDOPA
     Route: 048
  2. NORTHERA [Suspect]
     Active Substance: DROXIDOPA
     Indication: BLOOD PRESSURE ABNORMAL
     Dosage: SCHEDULE B, TITRATION COMPLETE
     Route: 065
     Dates: start: 20150916
  3. NORTHERA [Suspect]
     Active Substance: DROXIDOPA
     Route: 048
  4. SPIRONOLACTONE. [Concomitant]
     Active Substance: SPIRONOLACTONE
     Indication: CARDIAC FAILURE CONGESTIVE
     Route: 065
  5. METOPROLOL. [Concomitant]
     Active Substance: METOPROLOL
     Indication: CARDIAC FAILURE CONGESTIVE
     Route: 065
  6. RAMIPRIL. [Concomitant]
     Active Substance: RAMIPRIL
     Indication: CARDIAC FAILURE CONGESTIVE
     Route: 065
  7. NORTHERA [Suspect]
     Active Substance: DROXIDOPA
     Route: 065

REACTIONS (3)
  - Drug ineffective [Unknown]
  - Blood pressure decreased [Unknown]
  - Dry mouth [Unknown]
